FAERS Safety Report 13102903 (Version 2)
Quarter: 2017Q1

REPORT INFORMATION
  Report Type: Spontaneous
  Country: US (occurrence: US)
  Receive Date: 20170110
  Receipt Date: 20170330
  Transmission Date: 20170428
  Serious: No
  Sender: FDA-Public Use
  Company Number: US-ACTELION-A-US2017-148154

PATIENT
  Age: 45 Year
  Sex: Male

DRUGS (1)
  1. VALCHLOR [Suspect]
     Active Substance: MECHLORETHAMINE
     Indication: MYCOSIS FUNGOIDES
     Dosage: UNK, A FEW TIMES A WEEK TO START (THIN FILM TO AFFECTED SKIN)
     Route: 061
     Dates: start: 20161207

REACTIONS (1)
  - Application site pruritus [Unknown]
